FAERS Safety Report 8934580 (Version 1)
Quarter: 2012Q4

REPORT INFORMATION
  Report Type: 
  Country: US (occurrence: US)
  Receive Date: 20121129
  Receipt Date: 20121129
  Transmission Date: 20130627
  Serious: Yes (Other)
  Sender: FDA-Public Use
  Company Number: US-ALLERGAN-1216418US

PATIENT
  Sex: Female

DRUGS (2)
  1. BOTOX COSMETIC [Suspect]
     Indication: GLABELLAR FROWN LINES
     Dosage: UNK, single
     Route: 030
     Dates: start: 201205, end: 201205
  2. BOTOX COSMETIC [Suspect]
     Indication: CROW^S FEET

REACTIONS (2)
  - Ventricular extrasystoles [Unknown]
  - Cardiac disorder [Unknown]
